FAERS Safety Report 17794546 (Version 1)
Quarter: 2020Q2

REPORT INFORMATION
  Report Type: Report from Study
  Country: US (occurrence: US)
  Receive Date: 20200515
  Receipt Date: 20200515
  Transmission Date: 20200714
  Serious: Yes (Other)
  Sender: FDA-Public Use
  Company Number: US-ELI_LILLY_AND_COMPANY-US201905012521

PATIENT
  Age: 45 Year
  Sex: Male

DRUGS (7)
  1. OLANZAPINE PAMOATE [Suspect]
     Active Substance: OLANZAPINE PAMOATE
     Indication: SCHIZOAFFECTIVE DISORDER
     Dosage: 210 MG, 2/M
     Route: 030
     Dates: start: 20190502
  2. OLANZAPINE PAMOATE [Interacting]
     Active Substance: OLANZAPINE PAMOATE
     Dosage: 210 MG, 2/M
     Route: 030
     Dates: start: 20190521
  3. OLANZAPINE PAMOATE [Interacting]
     Active Substance: OLANZAPINE PAMOATE
     Indication: SCHIZOAFFECTIVE DISORDER
     Dosage: 210 MG, 2/M
     Route: 030
     Dates: start: 20190502
  4. OLANZAPINE PAMOATE [Interacting]
     Active Substance: OLANZAPINE PAMOATE
     Indication: SCHIZOAFFECTIVE DISORDER
     Dosage: 210 MG, 2/M
     Route: 030
     Dates: start: 20190502
  5. OLANZAPINE PAMOATE [Interacting]
     Active Substance: OLANZAPINE PAMOATE
     Dosage: 210 MG, 2/M
     Route: 030
     Dates: start: 20190521
  6. CLOZAPINE. [Interacting]
     Active Substance: CLOZAPINE
     Indication: SCHIZOAFFECTIVE DISORDER
     Dosage: 200 MG, BID
     Route: 065
  7. OLANZAPINE PAMOATE [Interacting]
     Active Substance: OLANZAPINE PAMOATE
     Dosage: 210 MG, 2/M
     Route: 030
     Dates: start: 20190521

REACTIONS (6)
  - Syncope [Recovered/Resolved]
  - Vomiting [Recovered/Resolved]
  - Fatigue [Recovered/Resolved]
  - Somnolence [Unknown]
  - Drug interaction [Unknown]
  - Hyperhidrosis [Recovered/Resolved]

NARRATIVE: CASE EVENT DATE: 20190521
